FAERS Safety Report 24827167 (Version 1)
Quarter: 2025Q1

REPORT INFORMATION
  Report Type: Spontaneous
  Country: US (occurrence: US)
  Receive Date: 20250109
  Receipt Date: 20250109
  Transmission Date: 20250409
  Serious: No
  Sender: SANOFI AVENTIS
  Company Number: US-SA-2025SA006959

PATIENT
  Age: 69 Year
  Sex: Male
  Weight: 79.55 kg

DRUGS (1)
  1. DUPIXENT [Suspect]
     Active Substance: DUPILUMAB
     Indication: Asthma
     Route: 058

REACTIONS (3)
  - Cough [Unknown]
  - Throat irritation [Unknown]
  - Nasopharyngitis [Unknown]
